FAERS Safety Report 8553801-2 (Version None)
Quarter: 2012Q2

REPORT INFORMATION
  Report Type: 
  Country: None (occurrence: None)
  Receive Date: 20120417
  Receipt Date: 20110504
  Transmission Date: 20120825
  Serious: Yes (Other)
  Sender: FDA-Public Use
  Company Number: 11-272

PATIENT
  Sex: Female
  Weight: 46.7205 kg

DRUGS (4)
  1. ALENDRONATE SODIUM (SALENDRONAT) [Concomitant]
  2. LORAZEPAM [Concomitant]
  3. ALEVE [Suspect]
     Indication: BACK PAIN
     Dosage: 440 MG/DAY, ORAL
     Route: 048
     Dates: start: 20110420
  4. FARESTON [Concomitant]

REACTIONS (3)
  - GASTROINTESTINAL HAEMORRHAGE [None]
  - DIZZINESS [None]
  - FAECES DISCOLOURED [None]
